FAERS Safety Report 13511724 (Version 1)
Quarter: 2017Q2

REPORT INFORMATION
  Report Type: Report from Study
  Country: BR (occurrence: BR)
  Receive Date: 20170504
  Receipt Date: 20170504
  Transmission Date: 20170830
  Serious: Yes (Hospitalization)
  Sender: FDA-Public Use
  Company Number: BR-UCBSA-2016043818

PATIENT
  Sex: Female
  Weight: 65 kg

DRUGS (16)
  1. CERTOLIZUMAB PEGOL [Suspect]
     Active Substance: CERTOLIZUMAB PEGOL
     Indication: RHEUMATOID ARTHRITIS
     Dosage: DOSE OF 2 AMPOULES EVERY 14 DAYS /1 AMPOULE EVERY 15 DAYS
     Dates: start: 20160829
  2. ALENIA [Concomitant]
     Active Substance: BUDESONIDE\FORMOTEROL FUMARATE
     Indication: LUNG DISORDER
     Dosage: UNK, ONCE DAILY (QD)
     Route: 045
     Dates: start: 2014
  3. FLUIMUCIL [Concomitant]
     Active Substance: ACETYLCYSTEINE
     Dosage: 1 DF, ONCE DAILY (QD)
     Route: 048
     Dates: start: 2014
  4. ENDOFOLIN [Concomitant]
     Active Substance: FOLIC ACID
     Indication: RHEUMATOID ARTHRITIS
     Dosage: UNK, WEEKLY (QW)
     Route: 048
     Dates: start: 201607
  5. FLUIMUCIL [Concomitant]
     Active Substance: ACETYLCYSTEINE
     Indication: LUNG DISORDER
     Dosage: 1 DF, 3X/WEEK
     Route: 048
     Dates: start: 2012
  6. NOVALGINA [Concomitant]
     Active Substance: METAMIZOLE SODIUM
     Indication: PAIN
  7. DIOSMIN [Concomitant]
     Active Substance: DIOSMIN
     Indication: PEAU D^ORANGE
     Dosage: UNK, ONCE DAILY (QD)
     Route: 048
     Dates: start: 20170116, end: 20170216
  8. OMEPRAZOLE. [Concomitant]
     Active Substance: OMEPRAZOLE
     Indication: GASTRIC DISORDER
     Dosage: UNK, ONCE DAILY (QD)
     Route: 048
     Dates: start: 2002
  9. CERTOLIZUMAB PEGOL [Suspect]
     Active Substance: CERTOLIZUMAB PEGOL
     Dosage: DOSE OF 2 AMPOULES EVERY 14 DAYS /1 AMPOULE EVERY 15 DAYS
     Dates: start: 20160829
  10. PRELONE [Concomitant]
     Active Substance: PREDNISOLONE
     Indication: LUNG DISORDER
     Dosage: 1 DF, ONCE DAILY (QD)
     Route: 048
     Dates: start: 201607
  11. TYLENOL [Concomitant]
     Active Substance: ACETAMINOPHEN
     Indication: PAIN
     Dosage: 1 DF, ONCE DAILY (QD)
     Route: 048
  12. FOLIC [Concomitant]
     Active Substance: FOLIC ACID
     Indication: PEAU D^ORANGE
     Dosage: 1 UNK, WEEKLY (QW)
     Dates: start: 20170116
  13. ENALAPRIL [Concomitant]
     Active Substance: ENALAPRIL
     Indication: BLOOD PRESSURE INCREASED
     Dosage: 5 MG, ONCE DAILY (QD)
     Route: 048
     Dates: start: 2014
  14. METHOTREXATE. [Concomitant]
     Active Substance: METHOTREXATE
     Indication: RHEUMATOID ARTHRITIS
     Dosage: 2 DF, ONCE DAILY (QD)
     Route: 048
     Dates: start: 201607
  15. DEPREVIX [Concomitant]
     Indication: BONE DISORDER
     Dosage: 1 DF, WEEKLY (QW)
     Route: 048
     Dates: start: 20170116
  16. SALONPAS PAIN RELIEF [Concomitant]
     Active Substance: MENTHOL\METHYL SALICYLATE
     Indication: PAIN
     Route: 061

REACTIONS (3)
  - Urinary incontinence [Unknown]
  - Cellulitis [Recovered/Resolved with Sequelae]
  - Drug effect decreased [Unknown]

NARRATIVE: CASE EVENT DATE: 2016
